FAERS Safety Report 6234234-0 (Version None)
Quarter: 2009Q2

REPORT INFORMATION
  Report Type: 
  Country: None (occurrence: None)
  Receive Date: 20090618
  Receipt Date: 20090616
  Transmission Date: 20091009
  Serious: Yes (Other)
  Sender: FDA-Public Use
  Company Number: JP-BAYER-200813900GPV

PATIENT
  Age: 25 Year
  Sex: Female
  Weight: 43 kg

DRUGS (3)
  1. FLUDARABINE PHOSPHATE [Suspect]
     Indication: APLASTIC ANAEMIA
     Dosage: FROM DAY - 5 TO - 3
     Route: 065
  2. CYCLOPHOSPHAMIDE [Suspect]
     Indication: APLASTIC ANAEMIA
     Dosage: FROM DAY -5 TO -3
     Route: 065
  3. TACROLIMUS [Concomitant]
     Indication: PROPHYLAXIS AGAINST GRAFT VERSUS HOST DISEASE
     Dosage: FROM DAY -3
     Route: 042

REACTIONS (12)
  - ABDOMINAL PAIN LOWER [None]
  - ACUTE GRAFT VERSUS HOST DISEASE IN INTESTINE [None]
  - ADENOVIRAL HAEMORRHAGIC CYSTITIS [None]
  - DYSURIA [None]
  - ENGRAFTMENT SYNDROME [None]
  - HAEMATURIA [None]
  - HERPES ZOSTER [None]
  - MICTURITION URGENCY [None]
  - NAUSEA [None]
  - PYREXIA [None]
  - RASH [None]
  - VOMITING [None]
